FAERS Safety Report 6672608-4 (Version None)
Quarter: 2010Q2

REPORT INFORMATION
  Report Type: 
  Country: None (occurrence: None)
  Receive Date: 20100406
  Receipt Date: 20100329
  Transmission Date: 20101027
  Serious: Yes (Death)
  Sender: FDA-Public Use
  Company Number: 548074

PATIENT
  Age: 8 Month
  Sex: Female

DRUGS (4)
  1. CARBOPLATIN [Suspect]
     Indication: NEPHROBLASTOMA
     Dosage: 5.5 MG/KG,
  2. CARBOPLATIN [Suspect]
     Indication: NEUROBLASTOMA
     Dosage: 5.5 MG/KG,
  3. (ETOPOSIDE) [Suspect]
     Indication: NEPHROBLASTOMA
     Dosage: 4.5 MG/KG
  4. (ETOPOSIDE) [Suspect]
     Indication: NEUROBLASTOMA
     Dosage: 4.5 MG/KG

REACTIONS (7)
  - APLASIA [None]
  - DISSEMINATED INTRAVASCULAR COAGULATION [None]
  - DRUG TOXICITY [None]
  - FUNGAL INFECTION [None]
  - LABORATORY TEST ABNORMAL [None]
  - PANCYTOPENIA [None]
  - VENOOCCLUSIVE DISEASE [None]
